FAERS Safety Report 19797334 (Version 1)
Quarter: 2021Q3

REPORT INFORMATION
  Report Type: Spontaneous
  Country: US (occurrence: US)
  Receive Date: 20210905
  Receipt Date: 20210905
  Transmission Date: 20211014
  Serious: Yes (Disabling)
  Sender: FDA-Public Use
  Company Number: None

PATIENT
  Age: 50 Year
  Weight: 65.7 kg

DRUGS (1)
  1. BAQSIMI [Suspect]
     Active Substance: GLUCAGON
     Indication: BLOOD GLUCOSE DECREASED
     Dosage: ?QUANTITY:1 SPRAY(S);?OTHER FREQUENCY:WHEN LOW BLOOD SUG;?
     Route: 055
     Dates: start: 20210905, end: 20210905

REACTIONS (3)
  - Nasal discomfort [None]
  - Burning sensation [None]
  - Sinus pain [None]

NARRATIVE: CASE EVENT DATE: 20210905
